FAERS Safety Report 6283866-2 (Version None)
Quarter: 2009Q3

REPORT INFORMATION
  Report Type: 
  Country: None (occurrence: None)
  Receive Date: 20090723
  Receipt Date: 20090723
  Transmission Date: 20100115
  Serious: No
  Sender: FDA-Public Use
  Company Number: None

PATIENT
  Age: 56 Year
  Sex: Female
  Weight: 75.2971 kg

DRUGS (1)
  1. PROCHLORPERAZINE 10 MG [Suspect]
     Indication: NAUSEA
     Dosage: 10MG 3 TIMES A DAY BUCCAL
     Route: 002
     Dates: start: 20040101, end: 20090708

REACTIONS (7)
  - BALANCE DISORDER [None]
  - COORDINATION ABNORMAL [None]
  - DYSKINESIA [None]
  - EXCESSIVE EYE BLINKING [None]
  - FATIGUE [None]
  - GAIT DISTURBANCE [None]
  - RESTLESS LEGS SYNDROME [None]
